FAERS Safety Report 9978641 (Version 1)
Quarter: 2014Q1

REPORT INFORMATION
  Report Type: Report from Study
  Country: US (occurrence: US)
  Receive Date: 20140306
  Receipt Date: 20140306
  Transmission Date: 20141002
  Serious: No
  Sender: FDA-Public Use
  Company Number: US-ABBVIE-13P-163-1173902-00

PATIENT
  Age: 55 Year
  Sex: Male
  Weight: 111.68 kg

DRUGS (2)
  1. HUMIRA [Suspect]
     Indication: PSORIASIS
  2. HUMIRA [Suspect]

REACTIONS (11)
  - Fear of disease [Unknown]
  - Skin fragility [Recovered/Resolved]
  - Injection site pain [Not Recovered/Not Resolved]
  - Hyperaesthesia [Recovered/Resolved]
  - Excoriation [Recovered/Resolved]
  - Laceration [Recovered/Resolved]
  - Gastrointestinal haemorrhage [Not Recovered/Not Resolved]
  - Haematochezia [Not Recovered/Not Resolved]
  - Diverticulitis [Not Recovered/Not Resolved]
  - Polyp [Recovered/Resolved]
  - Psoriasis [Not Recovered/Not Resolved]
